FAERS Safety Report 5403261-5 (Version None)
Quarter: 2007Q3

REPORT INFORMATION
  Report Type: 
  Country: None (occurrence: None)
  Receive Date: 20070801
  Receipt Date: 20070720
  Transmission Date: 20080115
  Serious: Yes (Other)
  Sender: FDA-Public Use
  Company Number: BE-PFIZER INC-2007061017

PATIENT
  Sex: Male

DRUGS (3)
  1. ZYVOX [Suspect]
  2. ZOCOR [Suspect]
  3. QUINOLONE ANTIBACTERIALS [Concomitant]

REACTIONS (1)
  - RHABDOMYOLYSIS [None]
